FAERS Safety Report 10725913 (Version 2)
Quarter: 2015Q1

REPORT INFORMATION
  Report Type: Report from Study
  Country: FI (occurrence: None)
  Receive Date: 20150116
  Receipt Date: 20150212
  Transmission Date: 20150721
  Serious: Yes (Life-Threatening)
  Sender: FDA-Public Use
  Company Number: 2014DEPFI00087

PATIENT

DRUGS (8)
  1. CYCLOPHOSPHAMIDE (CYCLOPHOSPHAMIDE) [Suspect]
     Active Substance: CYCLOPHOSPHAMIDE
     Indication: DIFFUSE LARGE B-CELL LYMPHOMA
     Dosage: ADMINISTERED ^ACCORDING TO PROTOCOL^, INTRAVENOUS
     Route: 042
     Dates: start: 20141124
  2. VINCRISTINE (VINCRISTINE) [Suspect]
     Active Substance: VINCRISTINE
     Indication: DIFFUSE LARGE B-CELL LYMPHOMA
     Dosage: GIVEN ^ACCORDING TO PROTOCOL^, INTRAVENOUS
     Route: 042
     Dates: start: 20141124
  3. RITUXIMAB (RITUXIMAB) [Suspect]
     Active Substance: RITUXIMAB
     Indication: DIFFUSE LARGE B-CELL LYMPHOMA
     Dosage: ADMINISTERED ^ACCORDING TO PROTOCOL^, INTRAVENOUS
     Route: 042
     Dates: start: 20141124
  4. DEXAMETHASONE (DEXAMETHASONE SODIUM SUCCINATE) [Suspect]
     Active Substance: DEXAMETHASONE
     Indication: DIFFUSE LARGE B-CELL LYMPHOMA
     Dosage: GIVEN ^ACCORDING TO PROTOCOL^
     Route: 042
     Dates: start: 20141124
  5. DOXORUBICIN [Suspect]
     Active Substance: DOXORUBICIN
     Indication: DIFFUSE LARGE B-CELL LYMPHOMA
     Dosage: ADMINISTERED ACCORDING TO PROTOCOL, INTRAVENOUS
     Route: 042
     Dates: start: 20141124
  6. ETOPOSIDE (ETOPOSIDE) [Suspect]
     Active Substance: ETOPOSIDE
     Indication: DIFFUSE LARGE B-CELL LYMPHOMA
     Dosage: GIVEN ^ACCORDING TO PROTOCOL^, INTRAVENOUS
     Route: 042
     Dates: start: 20141124
  7. DEPOCYT(E) (CYTARABINE) LIPOSOME INJECTABLE SUSPENSION, MG [Suspect]
     Active Substance: CYTARABINE
     Indication: DIFFUSE LARGE B-CELL LYMPHOMA
     Dosage: ADMINISTERED ^ACCORDING TO PROTOCOL^ (50 MCG, THREE TIMES), INTRATHECAL
     Route: 037
  8. NEULASTA [Suspect]
     Active Substance: PEGFILGRASTIM
     Indication: PRODUCT USED FOR UNKNOWN INDICATION
     Dates: start: 20141124

REACTIONS (1)
  - Pulmonary embolism [None]

NARRATIVE: CASE EVENT DATE: 20141202
